FAERS Safety Report 17297539 (Version 4)
Quarter: 2020Q2

REPORT INFORMATION
  Report Type: Report from Study
  Country: CA (occurrence: CA)
  Receive Date: 20200122
  Receipt Date: 20200423
  Transmission Date: 20200713
  Serious: Yes (Other)
  Sender: FDA-Public Use
  Company Number: CA-GLAXOSMITHKLINE-CA2020GSK011498

PATIENT
  Age: 70 Year
  Sex: Female

DRUGS (9)
  1. CONTRAVE [Suspect]
     Active Substance: BUPROPION HYDROCHLORIDE\NALTREXONE HYDROCHLORIDE
     Dosage: 1 DF, BID (1 TABLET IN THE MORNING AND 1 TABLET IN THE EVENING)
     Route: 048
     Dates: start: 20200123, end: 20200204
  2. CONTRAVE [Suspect]
     Active Substance: BUPROPION HYDROCHLORIDE\NALTREXONE HYDROCHLORIDE
     Dosage: 2 DF, BID (90/8 MG, 2 TABLETS IN MORNING AND 2 TABLETS IN EVENING)
     Route: 048
     Dates: start: 20200219, end: 20200408
  3. CONTRAVE [Suspect]
     Active Substance: BUPROPION HYDROCHLORIDE\NALTREXONE HYDROCHLORIDE
     Indication: WEIGHT DECREASED
     Dosage: 1 DF, QD (1 TABLET IN MORNING START DATE: APPROX. 20/NOV/2019,END: APPROX. 26/NOV/2019)
     Route: 048
     Dates: start: 20191120, end: 20191126
  4. CONTRAVE [Suspect]
     Active Substance: BUPROPION HYDROCHLORIDE\NALTREXONE HYDROCHLORIDE
     Dosage: 1 DF, BID (1 TABLET EVENING, START: APPROX. 27/NOV/2019, END: APPROX. 02/DEC/2019)
     Route: 048
     Dates: start: 20191127, end: 20191202
  5. CONTRAVE [Suspect]
     Active Substance: BUPROPION HYDROCHLORIDE\NALTREXONE HYDROCHLORIDE
     Dosage: 1 DF, 1D (1 TABLET MORNING SECOND ATTEMPT
     Route: 048
     Dates: start: 20200109, end: 20200122
  6. BUPROPION HYDROCHLORIDE. [Suspect]
     Active Substance: BUPROPION HYDROCHLORIDE
     Indication: DEPRESSION
     Dosage: 300 MG, QD
     Route: 048
  7. OLMESARTAN [Concomitant]
     Active Substance: OLMESARTAN
     Indication: HYPERTENSION
     Dosage: 40 MG, QD
     Route: 048
  8. CONTRAVE [Suspect]
     Active Substance: BUPROPION HYDROCHLORIDE\NALTREXONE HYDROCHLORIDE
     Dosage: 3 DF, 1D (2 TABLETS IN THE MORNING AND  1TABLET IN THE EVENING)
     Route: 048
     Dates: start: 20200205, end: 20200218
  9. DULOXETINE. [Concomitant]
     Active Substance: DULOXETINE
     Indication: DEPRESSION
     Dosage: 90 MG, QD
     Route: 048

REACTIONS (14)
  - Drug titration error [Unknown]
  - Diarrhoea [Unknown]
  - Abdominal pain lower [Unknown]
  - Patient dissatisfaction with treatment [Unknown]
  - Abdominal pain upper [Recovered/Resolved]
  - Memory impairment [Unknown]
  - Pain [Unknown]
  - Sleep disorder [Unknown]
  - Tremor [Recovering/Resolving]
  - Headache [Unknown]
  - Malaise [Unknown]
  - Knee arthroplasty [Unknown]
  - Loss of dreaming [Unknown]
  - Constipation [Unknown]

NARRATIVE: CASE EVENT DATE: 2019
